FAERS Safety Report 6407546-5 (Version None)
Quarter: 2009Q4

REPORT INFORMATION
  Report Type: 
  Country: None (occurrence: None)
  Receive Date: 20091015
  Receipt Date: 20091006
  Transmission Date: 20100525
  Serious: Yes (Other)
  Sender: FDA-Public Use
  Company Number: A-CH2009-27852

PATIENT
  Sex: Female

DRUGS (2)
  1. TRACLEER [Suspect]
     Dosage: 125 MG, BID, ORAL, 62.5 MG, BID, ORAL
     Route: 048
     Dates: end: 20090101
  2. TRACLEER [Suspect]
     Dosage: 125 MG, BID, ORAL, 62.5 MG, BID, ORAL
     Route: 048
     Dates: start: 20090101

REACTIONS (1)
  - BREAST CANCER FEMALE [None]
